FAERS Safety Report 6149727-4 (Version None)
Quarter: 2009Q2

REPORT INFORMATION
  Report Type: 
  Country: None (occurrence: None)
  Receive Date: 20090407
  Receipt Date: 20090407
  Transmission Date: 20091009
  Serious: Yes (Other)
  Sender: FDA-Public Use
  Company Number: None

PATIENT
  Age: 54 Year
  Sex: Male
  Weight: 99.7913 kg

DRUGS (1)
  1. TENORMIN [Suspect]
     Indication: HYPERTENSION
     Dosage: 25 MG DAILY PO
     Route: 048
     Dates: start: 20090220, end: 20090401

REACTIONS (6)
  - ASTHENIA [None]
  - DIZZINESS [None]
  - DIZZINESS POSTURAL [None]
  - HEADACHE [None]
  - MUSCLE SPASMS [None]
  - PRESYNCOPE [None]
